FAERS Safety Report 8125455 (Version 2)
Quarter: 2013Q2

REPORT INFORMATION
  Report Type: Spontaneous
  Country: US (occurrence: None)
  Receive Date: 20110817
  Receipt Date: 20120817
  Transmission Date: 20140414
  Serious: Yes (Other)
  Sender: FDA-Public Use
  Company Number: 201110657

PATIENT
  Age: 54 Year
  Sex: Female

DRUGS (1)
  1. LIORESAL INTRATHECAL [Suspect]
     Indication: MUSCLE SPASTICITY
     Dosage: 859 MCG, DAILY, INTRATHECAL
     Route: 037

REACTIONS (1)
  - CONVULSION [None]
